FAERS Safety Report 15784822 (Version 2)
Quarter: 2019Q1

REPORT INFORMATION
  Report Type: Spontaneous
  Country: RU (occurrence: RU)
  Receive Date: 20190103
  Receipt Date: 20190115
  Transmission Date: 20190417
  Serious: Yes (Other)
  Sender: FDA-Public Use
  Company Number: RU-TEVA-2018-RU-993401

PATIENT
  Age: 82 Year
  Sex: Female

DRUGS (11)
  1. ROSUVASTATIN. [Suspect]
     Active Substance: ROSUVASTATIN
     Route: 065
     Dates: start: 20171225
  2. WARFARIN [Interacting]
     Active Substance: WARFARIN
     Dosage: 2.5 MILLIGRAM DAILY;
     Route: 065
     Dates: start: 2017
  3. MOXONIDINE [Interacting]
     Active Substance: MOXONIDINE
     Route: 065
  4. CLONAZEPAM. [Interacting]
     Active Substance: CLONAZEPAM
     Indication: INSOMNIA
     Route: 065
  5. PENTAERYTHRITOL TETRANITRATE [Concomitant]
     Active Substance: PENTAERYTHRITOL TETRANITRATE
     Indication: ANGINA PECTORIS
     Route: 065
  6. AMLODIPINE [Interacting]
     Active Substance: AMLODIPINE BESYLATE
     Route: 065
  7. AMIODARONE [Interacting]
     Active Substance: AMIODARONE
     Indication: CARDIAC FAILURE
     Route: 065
  8. BISOPROLOL [Interacting]
     Active Substance: BISOPROLOL
     Route: 065
  9. PERINDOPRIL [Interacting]
     Active Substance: PERINDOPRIL
     Route: 065
  10. TORASEMIDE [Interacting]
     Active Substance: TORSEMIDE
     Dosage: 2.5-5 MG
     Route: 065
  11. ETHYL METHYL HYDROXYPYRIDINE SUCCINATE [Concomitant]
     Dosage: 250 MILLIGRAM DAILY;
     Route: 065

REACTIONS (3)
  - Hypocoagulable state [Recovered/Resolved]
  - Purpura [Recovering/Resolving]
  - Drug interaction [Unknown]

NARRATIVE: CASE EVENT DATE: 20180124
